FAERS Safety Report 8844638 (Version 2)
Quarter: 2012Q4

REPORT INFORMATION
  Report Type: 
  Country: US (occurrence: US)
  Receive Date: 20121017
  Receipt Date: 20121115
  Transmission Date: 20130627
  Serious: No
  Sender: FDA-Public Use
  Company Number: US-PFIZER INC-2012257200

PATIENT
  Age: 73 Year
  Sex: Female
  Weight: 47.62 kg

DRUGS (4)
  1. LIPITOR [Suspect]
     Indication: HIGH CHOLESTEROL
     Dosage: 10 mg, UNK
  2. PLAVIX [Concomitant]
     Dosage: 75 mg, UNK
  3. PROTONIX [Concomitant]
     Dosage: UNK
  4. CLONAZEPAM [Concomitant]
     Dosage: 0.5 mg, 2x/day

REACTIONS (3)
  - Blood cholesterol increased [Unknown]
  - Blood calcium increased [Unknown]
  - Weight increased [Unknown]
